FAERS Safety Report 10018585 (Version 2)
Quarter: 2014Q1

REPORT INFORMATION
  Report Type: Spontaneous
  Country: KR (occurrence: KR)
  Receive Date: 20140318
  Receipt Date: 20140324
  Transmission Date: 20141002
  Serious: Yes (Death)
  Sender: FDA-Public Use
  Company Number: KR-BAYER-2014-038812

PATIENT
  Age: 68 Year
  Sex: Male

DRUGS (2)
  1. GADOVIST [Suspect]
     Indication: NUCLEAR MAGNETIC RESONANCE IMAGING BRAIN
     Dosage: DOSE PER TREATMENT DAY 7500
     Dates: start: 20140306
  2. GADOVIST [Suspect]
     Indication: ANGIOGRAM

REACTIONS (5)
  - Myocardial infarction [Fatal]
  - Dyspnoea [Fatal]
  - Chest pain [Fatal]
  - Nausea [Fatal]
  - Dizziness [Fatal]
